FAERS Safety Report 7928583-5 (Version None)
Quarter: 2011Q4

REPORT INFORMATION
  Report Type: 
  Country: None (occurrence: None)
  Receive Date: 20111118
  Receipt Date: 20111116
  Transmission Date: 20120403
  Serious: Yes (Hospitalization)
  Sender: FDA-Public Use
  Company Number: SE-JNJFOC-20111107679

PATIENT
  Sex: Female

DRUGS (5)
  1. SIMPONI [Suspect]
     Indication: RHEUMATOID ARTHRITIS
     Route: 058
     Dates: start: 20110124, end: 20111111
  2. NSAID [Concomitant]
     Dates: start: 20060921
  3. ANTI-MALARIAL NOS [Concomitant]
     Dates: start: 20071126
  4. PREDNISOLONE [Concomitant]
     Dates: start: 20071126
  5. METHOTREXATE [Concomitant]
     Dates: start: 20060921

REACTIONS (1)
  - PNEUMONIA [None]
